FAERS Safety Report 16397543 (Version 4)
Quarter: 2019Q3

REPORT INFORMATION
  Report Type: Report from Study
  Country: US (occurrence: US)
  Receive Date: 20190606
  Receipt Date: 20190731
  Transmission Date: 20191004
  Serious: No
  Sender: FDA-Public Use
  Company Number: US-AMGEN-USASP2019086880

PATIENT
  Age: 61 Year
  Sex: Male
  Weight: 71.66 kg

DRUGS (2)
  1. REPATHA [Suspect]
     Active Substance: EVOLOCUMAB
     Indication: PRODUCT USED FOR UNKNOWN INDICATION
     Dosage: UNK
     Route: 065
     Dates: start: 2018
  2. REPATHA [Suspect]
     Active Substance: EVOLOCUMAB
     Indication: LOW DENSITY LIPOPROTEIN INCREASED
     Dosage: 420 MILLIGRAM, QMO
     Route: 065

REACTIONS (7)
  - Dry skin [Unknown]
  - Injection site haemorrhage [Unknown]
  - Pruritus [Unknown]
  - Accidental exposure to product [Recovered/Resolved]
  - Device issue [Unknown]
  - Skin swelling [Unknown]
  - Injection site swelling [Unknown]

NARRATIVE: CASE EVENT DATE: 20190530
